FAERS Safety Report 8428690-7 (Version None)
Quarter: 2012Q2

REPORT INFORMATION
  Report Type: 
  Country: None (occurrence: None)
  Receive Date: 20120323
  Receipt Date: 20110708
  Transmission Date: 20120825
  Serious: Yes (Other)
  Sender: FDA-Public Use
  Company Number: 163-21880-11071174

PATIENT
  Age: 87 Year
  Sex: Male

DRUGS (2)
  1. REVLIMID [Suspect]
     Indication: MULTIPLE MYELOMA
     Dosage: 10 MG, 1 IN 1 D, PO ; 5 MG, QD X28 DAYS, PO
     Route: 048
     Dates: start: 20091001, end: 20100101
  2. REVLIMID [Suspect]
     Indication: MULTIPLE MYELOMA
     Dosage: 10 MG, 1 IN 1 D, PO ; 5 MG, QD X28 DAYS, PO
     Route: 048
     Dates: start: 20101101, end: 20110705

REACTIONS (1)
  - ANAEMIA [None]
